FAERS Safety Report 5856032-X (Version None)
Quarter: 2008Q3

REPORT INFORMATION
  Report Type: 
  Country: None (occurrence: None)
  Receive Date: 20080821
  Receipt Date: 20080814
  Transmission Date: 20090109
  Serious: Yes (Disabling)
  Sender: FDA-Public Use
  Company Number: APP200800135

PATIENT
  Age: 28 Year
  Sex: Female

DRUGS (7)
  1. SENSORCAINE [Suspect]
     Indication: MUSCULOSKELETAL PAIN
     Dosage: CONTINUOUS VIA PAIN PUMP
     Dates: start: 20030601
  2. NAROPIN [Suspect]
     Indication: MUSCULOSKELETAL PAIN
     Dosage: CONTINUOUS VIA PAIN PUMP; 400 ML
     Dates: start: 20030601
  3. NAROPIN [Suspect]
     Indication: NEUROMUSCULAR BLOCKING THERAPY
     Dosage: CONTINUOUS VIA PAIN PUMP; 400 ML
     Dates: start: 20030601
  4. NAROPIN [Suspect]
     Indication: MUSCULOSKELETAL PAIN
     Dosage: CONTINUOUS VIA PAIN PUMP; 400 ML
     Dates: start: 20030609
  5. NAROPIN [Suspect]
     Indication: NEUROMUSCULAR BLOCKING THERAPY
     Dosage: CONTINUOUS VIA PAIN PUMP; 400 ML
     Dates: start: 20030609
  6. ORATEC ANGLE TIP TAC-S PROBE [Suspect]
     Indication: SURGERY
     Dates: start: 20030601
  7. DJ ORTHO PAIN BUSTER PAIN PUMP [Suspect]
     Indication: MUSCULOSKELETAL PAIN
     Dates: start: 20030609

REACTIONS (8)
  - CHONDROLYSIS [None]
  - FALL [None]
  - HYPOKINESIA [None]
  - MOVEMENT DISORDER [None]
  - MUSCULOSKELETAL DISCOMFORT [None]
  - MUSCULOSKELETAL PAIN [None]
  - OSTEOARTHRITIS [None]
  - ROTATOR CUFF SYNDROME [None]
